FAERS Safety Report 6318276-2 (Version None)
Quarter: 2009Q3

REPORT INFORMATION
  Report Type: 
  Country: None (occurrence: None)
  Receive Date: 20090820
  Receipt Date: 20090820
  Transmission Date: 20100115
  Serious: Yes (Other)
  Sender: FDA-Public Use
  Company Number: None

PATIENT
  Age: 42 Year
  Sex: Female
  Weight: 60.782 kg

DRUGS (1)
  1. REFISSA .05A% SPEAR [Suspect]
     Indication: SKIN COSMETIC PROCEDURE
     Dosage: PEA SIZE 3 TIMES PER WEEK TOP
     Route: 061
     Dates: start: 20090723, end: 20090817

REACTIONS (7)
  - ACNE [None]
  - APHTHOUS STOMATITIS [None]
  - CONDITION AGGRAVATED [None]
  - EATING DISORDER [None]
  - EYE SWELLING [None]
  - EYELID OEDEMA [None]
  - LIP SWELLING [None]
